FAERS Safety Report 7632553 (Version 12)
Quarter: 2013Q4

REPORT INFORMATION
  Report Type: Spontaneous
  Country: US (occurrence: US)
  Receive Date: 20101018
  Receipt Date: 20131007
  Transmission Date: 20140711
  Serious: Yes (Death, Life-Threatening, Hospitalization, Congenital Anomaly, Other)
  Sender: FDA-Public Use
  Company Number: US-PFIZER INC-2010128177

PATIENT
  Sex: Female
  Weight: 2.9 kg

DRUGS (24)
  1. ZOLOFT [Suspect]
     Indication: DEPRESSION
     Dosage: UNK
     Route: 064
     Dates: start: 2005
  2. ZOLOFT [Suspect]
     Dosage: 50 MG, UNK
     Route: 064
  3. ZOLOFT [Suspect]
     Dosage: 200 MG DAILY
     Route: 064
  4. ZOLOFT [Suspect]
     Dosage: 50 MG DAILY
     Route: 064
     Dates: start: 20080819
  5. SERTRALINE HCL [Suspect]
     Dosage: UNK
     Route: 064
     Dates: start: 2005
  6. AMOXICILLIN [Concomitant]
     Dosage: 875 MG, UNK
     Route: 064
     Dates: start: 2008
  7. FOLIC ACID [Concomitant]
     Dosage: 1 MG, 3X/DAY
     Route: 064
     Dates: start: 2008
  8. FOLIC ACID [Concomitant]
     Dosage: 1 MG, 4X/DAY
     Dates: start: 2008
  9. CALCIUM [Concomitant]
     Dosage: 500 MG, UNK
     Route: 064
  10. PRENATAL VITAMINS [Concomitant]
     Dosage: UNK
     Route: 064
  11. IMODIUM A-D [Concomitant]
     Dosage: UNK
     Route: 064
  12. CLARITIN [Concomitant]
     Dosage: UNK
     Route: 064
  13. CLOTRIM [Concomitant]
     Dosage: UNK
     Route: 064
  14. ADVANCED NATALCARE [Concomitant]
     Dosage: UNK
     Route: 064
  15. GENTAK [Concomitant]
     Dosage: 0.3 %, UNK
     Route: 064
  16. IBUPROFEN [Concomitant]
     Dosage: UNK
     Route: 064
  17. AUGMENTIN [Concomitant]
     Dosage: UNK
     Route: 064
  18. AMOXICILLIN W/CLAVULANATE POTASSIUM [Concomitant]
     Dosage: UNK
     Route: 064
  19. OSCAL [Concomitant]
     Dosage: UNK
     Route: 064
  20. BENEFIBER [Concomitant]
     Dosage: UNK
     Route: 064
  21. MACROBID [Concomitant]
     Dosage: UNK
     Route: 064
  22. DOCUSATE [Concomitant]
     Dosage: UNK
     Route: 064
  23. BRETHINE [Concomitant]
     Dosage: UNK
     Route: 064
  24. EXCEDRIN MIGRAINE [Concomitant]
     Dosage: UNK
     Route: 064

REACTIONS (23)
  - Foetal exposure during pregnancy [Fatal]
  - Anomalous pulmonary venous connection [Fatal]
  - Failure to thrive [Fatal]
  - Heart disease congenital [Fatal]
  - Pulmonary hypertension [Fatal]
  - Dilatation ventricular [Unknown]
  - Tricuspid valve incompetence [Unknown]
  - Ankyloglossia congenital [Unknown]
  - Respiratory distress [Unknown]
  - Haemolytic anaemia [Unknown]
  - Congenital great vessel anomaly [Unknown]
  - Cor triatriatum [Unknown]
  - Rectal prolapse [Unknown]
  - Gastrooesophageal reflux disease [Unknown]
  - Atrial septal defect [Unknown]
  - Congenital pulmonary valve atresia [Unknown]
  - Pulmonary veno-occlusive disease [Unknown]
  - Mitral valve incompetence [Unknown]
  - Pulmonary veno-occlusive disease [Unknown]
  - Pulmonary veno-occlusive disease [Unknown]
  - Congenital pulmonary valve atresia [Unknown]
  - Respiratory failure [Unknown]
  - Jaundice neonatal [Unknown]
